FAERS Safety Report 15244949 (Version 4)
Quarter: 2019Q1

REPORT INFORMATION
  Report Type: Spontaneous
  Country: FR (occurrence: FR)
  Receive Date: 20180806
  Receipt Date: 20190125
  Transmission Date: 20190417
  Serious: Yes (Life-Threatening, Hospitalization, Other)
  Sender: FDA-Public Use
  Company Number: FR-MYLANLABS-2018M1057743

PATIENT
  Age: 15 Year
  Sex: Male

DRUGS (7)
  1. ALCOHOL. [Suspect]
     Active Substance: ALCOHOL
     Indication: PRODUCT USED FOR UNKNOWN INDICATION
     Dosage: UNK
  2. EUPHON                             /08611101/ [Suspect]
     Active Substance: CODEINE\SISYMBRIUM OFFICINALE WHOLE
     Indication: DRUG ABUSER
     Dosage: 300 MILLILITER, TOTAL (300-ML BOTTLE; A CODEINE-BASED COUGH SYRUP, I.E. 1 MG/ML)
     Route: 048
  3. EUPHON                             /08611101/ [Suspect]
     Active Substance: CODEINE\SISYMBRIUM OFFICINALE WHOLE
     Dosage: UNK
  4. PROMETHAZINE [Suspect]
     Active Substance: PROMETHAZINE\PROMETHAZINE HYDROCHLORIDE
     Dosage: 10 DF,1X [10 TAB OF 25 MG (250MG) IN A DAY]
     Route: 048
  5. PROMETHAZINE [Suspect]
     Active Substance: PROMETHAZINE\PROMETHAZINE HYDROCHLORIDE
     Indication: DRUG ABUSER
     Dosage: 30 DOSAGE FORM, TOTAL (THREE 10-TABLET PACKS)
     Route: 048
  6. EUPHON                             /08611101/ [Suspect]
     Active Substance: CODEINE\SISYMBRIUM OFFICINALE WHOLE
     Dosage: UNK
     Dates: start: 2016, end: 2016
  7. CANNABIS [Suspect]
     Active Substance: CANNABIS SATIVA SUBSP. INDICA TOP
     Indication: PRODUCT USED FOR UNKNOWN INDICATION
     Dosage: ROLLED CIGARETTE
     Route: 055

REACTIONS (12)
  - Anxiety [Unknown]
  - Toxicity to various agents [Unknown]
  - Somnolence [Recovered/Resolved]
  - Drug abuse [Recovered/Resolved]
  - Disorientation [Recovered/Resolved]
  - Drug dependence [Unknown]
  - Confusional state [Recovered/Resolved]
  - Agitation [Recovered/Resolved]
  - Intentional overdose [Unknown]
  - Drug abuser [Recovered/Resolved]
  - Hallucination, visual [Recovered/Resolved]
  - Drug tolerance [Unknown]

NARRATIVE: CASE EVENT DATE: 2016
